FAERS Safety Report 7832910 (Version 3)
Quarter: 2013Q2

REPORT INFORMATION
  Report Type: Spontaneous
  Country: GB (occurrence: GB)
  Receive Date: 20110228
  Receipt Date: 20130625
  Transmission Date: 20140414
  Serious: Yes (Disabling)
  Sender: FDA-Public Use
  Company Number: GB-PFIZER INC-2011040172

PATIENT
  Age: 58 Year
  Sex: Male
  Weight: 84 kg

DRUGS (6)
  1. AMLODIPINE BESILATE [Suspect]
     Dosage: UNK
     Route: 065
     Dates: start: 20101004
  2. EPADERM [Concomitant]
     Dosage: UNK
     Route: 065
     Dates: start: 20110214
  3. FEXOFENADINE [Concomitant]
     Dosage: UNK
     Route: 065
     Dates: start: 20110214
  4. FLUCLOXACILLIN [Concomitant]
     Dosage: UNK
     Route: 065
     Dates: start: 20110214
  5. PROPRANOLOL [Concomitant]
     Dosage: UNK
     Route: 065
     Dates: start: 20101018, end: 20110209
  6. RAMIPRIL [Concomitant]
     Dosage: UNK
     Route: 065
     Dates: start: 20101018, end: 20110209

REACTIONS (2)
  - Blister [Recovered/Resolved]
  - Rash macular [Recovered/Resolved]
